FAERS Safety Report 25367378 (Version 1)
Quarter: 2025Q2

REPORT INFORMATION
  Report Type: Other
  Country: FR (occurrence: FR)
  Receive Date: 20250528
  Receipt Date: 20250528
  Transmission Date: 20250717
  Serious: Yes (Death, Other)
  Sender: STRIDES
  Company Number: None

PATIENT
  Age: 29 Year
  Sex: Female
  Weight: 90 kg

DRUGS (11)
  1. VANCOMYCIN [Suspect]
     Active Substance: VANCOMYCIN
     Indication: Clostridium difficile colitis
     Route: 048
     Dates: start: 20220203, end: 20220204
  2. METRONIDAZOLE [Suspect]
     Active Substance: METRONIDAZOLE
     Indication: Colitis
     Route: 065
     Dates: start: 20220119, end: 20220203
  3. TRIMEBUTINE [Suspect]
     Active Substance: TRIMEBUTINE
     Indication: Abdominal pain
     Route: 042
     Dates: start: 20220202, end: 20220202
  4. TRIMEBUTINE [Suspect]
     Active Substance: TRIMEBUTINE
     Route: 042
     Dates: start: 20220204, end: 20220204
  5. PROPRANOLOL HYDROCHLORIDE [Suspect]
     Active Substance: PROPRANOLOL HYDROCHLORIDE
     Indication: Abdominal pain
     Route: 048
     Dates: start: 20220204, end: 20220204
  6. ONDANSETRON [Suspect]
     Active Substance: ONDANSETRON
     Indication: Nausea
     Route: 042
     Dates: start: 20220203, end: 20220204
  7. ACETAMINOPHEN [Suspect]
     Active Substance: ACETAMINOPHEN
     Indication: Abdominal pain
     Route: 048
     Dates: start: 20220202, end: 20220204
  8. PANTOPRAZOLE [Suspect]
     Active Substance: PANTOPRAZOLE
     Indication: Product used for unknown indication
     Route: 048
     Dates: start: 20220203, end: 20220204
  9. OFLOXACIN [Suspect]
     Active Substance: OFLOXACIN
     Indication: Colitis
     Route: 065
     Dates: start: 20220119, end: 20220203
  10. PHLOROGLUCINOL [Concomitant]
     Active Substance: PHLOROGLUCINOL
     Indication: Abdominal pain
     Route: 042
     Dates: start: 20220202, end: 20220202
  11. METOCLOPRAMIDE HYDROCHLORIDE [Concomitant]
     Active Substance: METOCLOPRAMIDE HYDROCHLORIDE
     Indication: Nausea
     Route: 042
     Dates: start: 20220202, end: 20220202

REACTIONS (2)
  - Cardio-respiratory arrest [Fatal]
  - Tachycardia [Recovered/Resolved]

NARRATIVE: CASE EVENT DATE: 20220204
